FAERS Safety Report 14629987 (Version 1)
Quarter: 2018Q1

REPORT INFORMATION
  Report Type: Spontaneous
  Country: US (occurrence: US)
  Receive Date: 20180313
  Receipt Date: 20180313
  Transmission Date: 20180509
  Serious: No
  Sender: FDA-Public Use
  Company Number: US-JNJFOC-20180237648

PATIENT
  Sex: Female

DRUGS (1)
  1. KETOCONAZOLE. [Suspect]
     Active Substance: KETOCONAZOLE
     Indication: SEBORRHOEIC DERMATITIS
     Route: 061
     Dates: start: 201802, end: 201802

REACTIONS (3)
  - Hair texture abnormal [Unknown]
  - Alopecia [Unknown]
  - Trichorrhexis [Unknown]

NARRATIVE: CASE EVENT DATE: 201802
